FAERS Safety Report 7031567-5 (Version None)
Quarter: 2010Q4

REPORT INFORMATION
  Report Type: 
  Country: None (occurrence: None)
  Receive Date: 20101006
  Receipt Date: 20101006
  Transmission Date: 20110411
  Serious: No
  Sender: FDA-Public Use
  Company Number: None

PATIENT
  Age: 48 Year
  Sex: Female
  Weight: 77.1115 kg

DRUGS (1)
  1. NASONEX [Suspect]

REACTIONS (3)
  - NASAL DRYNESS [None]
  - NASAL ULCER [None]
  - VISUAL IMPAIRMENT [None]
